FAERS Safety Report 8563924-X (Version None)
Quarter: 2012Q3

REPORT INFORMATION
  Report Type: 
  Country: None (occurrence: None)
  Receive Date: 20120803
  Receipt Date: 20120724
  Transmission Date: 20120928
  Serious: Yes (Hospitalization)
  Sender: FDA-Public Use
  Company Number: US-BAYER-2012-046805

PATIENT
  Age: 21 Year
  Sex: Female
  Weight: 58.957 kg

DRUGS (8)
  1. AZITHROMYCIN [Concomitant]
     Dosage: 250 MG, UNK
     Route: 048
     Dates: start: 20090313
  2. CELLCEPT [Concomitant]
     Indication: AUTOIMMUNE RETINOPATHY
     Dosage: 1000 MG, UNK
     Route: 048
     Dates: start: 20080829, end: 20090417
  3. VESICARE [Concomitant]
     Dosage: 5 MG, UNK
     Route: 048
     Dates: start: 20090413
  4. NAPROXEN (ALEVE) [Concomitant]
  5. FLEXERIL [Concomitant]
     Dosage: 10 MG, UNK
     Route: 048
     Dates: start: 20081004, end: 20090826
  6. YASMIN [Suspect]
     Dosage: UNK
     Dates: start: 20061001, end: 20090401
  7. AMOXICILLIN [Concomitant]
     Dosage: 250 MG, UNK
     Route: 048
     Dates: start: 20090216
  8. LYRICA [Concomitant]
     Dosage: 75 MG, UNK
     Route: 048
     Dates: start: 20090413

REACTIONS (6)
  - EMOTIONAL DISTRESS [None]
  - INJURY [None]
  - PULMONARY EMBOLISM [None]
  - GENERAL PHYSICAL HEALTH DETERIORATION [None]
  - ANXIETY [None]
  - PAIN [None]
